FAERS Safety Report 7526260-6 (Version None)
Quarter: 2011Q2

REPORT INFORMATION
  Report Type: 
  Country: None (occurrence: None)
  Receive Date: 20110527
  Receipt Date: 20110519
  Transmission Date: 20111010
  Serious: Yes (Other)
  Sender: FDA-Public Use
  Company Number: ACO_21478_2011

PATIENT
  Age: 58 Year
  Sex: Female
  Weight: 81.6 kg

DRUGS (7)
  1. GABAPENTIN [Concomitant]
  2. LIPTIOR (ATORVASTATIN CALCIUM) [Concomitant]
  3. VERAPAMIL [Concomitant]
  4. TIZANIDINE TABLET (TIZANIDINE) [Concomitant]
  5. BETASERON [Concomitant]
  6. AMPYRA [Suspect]
     Indication: GAIT DISTURBANCE
     Dosage: 10 MG, BID, ORAL
     Route: 048
     Dates: start: 20100801
  7. CARDURA [Concomitant]

REACTIONS (3)
  - THERAPEUTIC RESPONSE UNEXPECTED [None]
  - HEPATIC STEATOSIS [None]
  - BLOOD TRIGLYCERIDES INCREASED [None]
